FAERS Safety Report 24933840 (Version 1)
Quarter: 2025Q1

REPORT INFORMATION
  Report Type: Report from Study
  Country: CA (occurrence: CA)
  Receive Date: 20250206
  Receipt Date: 20250206
  Transmission Date: 20250408
  Serious: Yes (Other)
  Sender: EXELIXIS
  Company Number: CA-IPSEN Group, Research and Development-2024-04028

PATIENT
  Sex: Male

DRUGS (8)
  1. CABOMETYX [Suspect]
     Active Substance: CABOZANTINIB S-MALATE
     Indication: Renal cell carcinoma
     Dosage: 60 MG, QD
     Route: 048
     Dates: start: 20230826
  2. MONOPRIL [Concomitant]
     Active Substance: FOSINOPRIL SODIUM
  3. AMLODIPINE;ATORVASTATIN [Concomitant]
  4. METOPROLOL [Concomitant]
     Active Substance: METOPROLOL
  5. PERINDOPRIL ERBUMINE [Concomitant]
     Active Substance: PERINDOPRIL ERBUMINE
  6. INDOMETHACIN [Concomitant]
     Active Substance: INDOMETHACIN
  7. TYLENOL [Concomitant]
     Active Substance: ACETAMINOPHEN
  8. PREGABALIN [Concomitant]
     Active Substance: PREGABALIN

REACTIONS (2)
  - Malignant neoplasm progression [Unknown]
  - Therapeutic product ineffective [Unknown]
